FAERS Safety Report 17497761 (Version 1)
Quarter: 2020Q1

REPORT INFORMATION
  Report Type: Spontaneous
  Country: BE (occurrence: BE)
  Receive Date: 20200304
  Receipt Date: 20200304
  Transmission Date: 20200409
  Serious: Yes (Other)
  Sender: FDA-Public Use
  Company Number: BE-MYLANLABS-2020M1022862

PATIENT

DRUGS (2)
  1. REMIFENTANIL [Suspect]
     Active Substance: REMIFENTANIL
     Dosage: 0.5 UG/KG, UNK (AT THE TIME OF ANESTHESIA INDUCTION)
  2. REMIFENTANIL [Suspect]
     Active Substance: REMIFENTANIL
     Indication: INDUCTION OF ANAESTHESIA
     Dosage: 0.2 UG/KG, UNK (PER MIN)

REACTIONS (2)
  - Neonatal respiratory depression [Unknown]
  - Foetal exposure during delivery [Recovered/Resolved]
